FAERS Safety Report 10720093 (Version 1)
Quarter: 2015Q1

REPORT INFORMATION
  Report Type: Spontaneous
  Country: US (occurrence: US)
  Receive Date: 20150119
  Receipt Date: 20150119
  Transmission Date: 20150721
  Serious: No
  Sender: FDA-Public Use
  Company Number: US-UNITED THERAPEUTICS-UNT-2014-006818

PATIENT
  Age: 64 Year
  Sex: Male
  Weight: 86.17 kg

DRUGS (3)
  1. TYVASO [Suspect]
     Active Substance: TREPROSTINIL
     Indication: PULMONARY ARTERIAL HYPERTENSION
     Dosage: 18-54 MICROGRAMS, QID
     Dates: start: 20140828
  2. ADEMPAS [Concomitant]
     Active Substance: RIOCIGUAT
     Indication: PRODUCT USED FOR UNKNOWN INDICATION
  3. LETAIRIS [Concomitant]
     Active Substance: AMBRISENTAN
     Indication: PRODUCT USED FOR UNKNOWN INDICATION

REACTIONS (4)
  - Headache [Unknown]
  - Oedema peripheral [Recovered/Resolved]
  - Diarrhoea [Recovered/Resolved]
  - Fatigue [Unknown]

NARRATIVE: CASE EVENT DATE: 2014
